FAERS Safety Report 7146077-4 (Version None)
Quarter: 2010Q4

REPORT INFORMATION
  Report Type: 
  Country: None (occurrence: None)
  Receive Date: 20101208
  Receipt Date: 20101126
  Transmission Date: 20110411
  Serious: Yes (Hospitalization, Other)
  Sender: FDA-Public Use
  Company Number: US-AMGEN-QUU418586

PATIENT

DRUGS (15)
  1. NEULASTA [Suspect]
     Indication: CHEMOTHERAPY
     Dosage: 6 MG, Q3WK
     Route: 058
     Dates: start: 20100413, end: 20100614
  2. CYCLOPHOSPHAMIDE [Concomitant]
     Indication: BREAST CANCER
     Dosage: UNK UNK, UNK
     Dates: start: 20100510, end: 20100603
  3. PACLITAXEL PTOTEIN-BOUND PARTICLES FOR INJECTABLE SUSPENSION [Concomitant]
     Dosage: UNK UNK, UNK
  4. PHENAZOPYRIDINE HCL TAB [Concomitant]
  5. ABRAXANE [Concomitant]
     Indication: BREAST CANCER
     Dosage: UNK
     Dates: start: 20100510, end: 20100603
  6. PERCOCET [Concomitant]
  7. PRILOSEC [Concomitant]
  8. ADVAIR [Concomitant]
  9. SINGULAIR [Concomitant]
  10. XANAX [Concomitant]
  11. LEXAPRO [Concomitant]
  12. LOPID [Concomitant]
  13. EMEND                              /01627301/ [Concomitant]
  14. MESNA [Concomitant]
  15. COMPAZINE [Concomitant]

REACTIONS (6)
  - ANGIOEDEMA [None]
  - HYPERSENSITIVITY [None]
  - PRURITUS [None]
  - TACHYPNOEA [None]
  - URTICARIA [None]
  - WHITE BLOOD CELL COUNT INCREASED [None]
